FAERS Safety Report 4411988-7 (Version None)
Quarter: 2004Q3

REPORT INFORMATION
  Report Type: 
  Country: None (occurrence: None)
  Receive Date: 20040730
  Receipt Date: 20040608
  Transmission Date: 20050211
  Serious: Yes (Life-Threatening)
  Sender: FDA-Public Use
  Company Number: JP-ROCHE-370137

PATIENT
  Age: 81 Year
  Sex: Female

DRUGS (10)
  1. TORSEMIDE [Suspect]
     Route: 048
     Dates: start: 20040405, end: 20040423
  2. NORVASC [Concomitant]
     Dates: start: 20040430
  3. ASPIRIN [Concomitant]
     Dates: start: 20010213
  4. ACINON [Concomitant]
     Dates: start: 19950216
  5. ALMARL [Concomitant]
     Dates: start: 19990812
  6. LAC B [Concomitant]
     Dates: start: 20040405
  7. TANNALBIN [Concomitant]
     Dates: start: 20040413
  8. NITROGLYCERIN [Concomitant]
     Dosage: TRADE NAME REPORTED AS MILLIS.
     Dates: start: 19950203
  9. RIVOTRIL [Concomitant]
     Dates: start: 19990812
  10. FERROMIA [Concomitant]
     Dates: start: 20020822

REACTIONS (7)
  - DEPRESSED LEVEL OF CONSCIOUSNESS [None]
  - DYSPHAGIA [None]
  - DYSPNOEA [None]
  - HYPOAESTHESIA [None]
  - HYPOKALAEMIA [None]
  - METABOLIC ACIDOSIS [None]
  - RESPIRATORY FAILURE [None]
